FAERS Safety Report 9184035 (Version 1)
Quarter: 2012Q4

REPORT INFORMATION
  Report Type: 
  Country: NL (occurrence: NL)
  Receive Date: 20121031
  Receipt Date: 20121031
  Transmission Date: 20130627
  Serious: Yes (Other)
  Sender: FDA-Public Use
  Company Number: PHHY2012NL015930

PATIENT
  Age: 55 None
  Sex: Female

DRUGS (17)
  1. ZOMETA [Suspect]
     Indication: BREAST CANCER METASTATIC
     Dosage: 4 mg/ 100 ml once per 28 days
     Dates: start: 20111230
  2. ZOMETA [Suspect]
     Dosage: 4 mg/ 100 ml once per 28 days
     Dates: start: 20120203
  3. ZOMETA [Suspect]
     Dosage: 4 mg/ 100 ml once per 28 days
     Dates: start: 20121002
  4. ZELITREX [Concomitant]
  5. PARACETAMOL [Concomitant]
     Dosage: 1000 mg, QID
  6. MORPHINE [Concomitant]
  7. FEMARA [Concomitant]
  8. OXYNORM [Concomitant]
     Dosage: 15 mg, PRN
  9. AMITRIPTYLINE [Concomitant]
     Dosage: 25 mg, QD
  10. PANTOZOL [Concomitant]
  11. OXAZEPAM [Concomitant]
     Dosage: 20 mg, QD
  12. DIAZEPAM [Concomitant]
     Dosage: 5 mg, QD
  13. MOVICOLON [Concomitant]
     Dosage: 2 DF (2 daily dose)
  14. FENTANYL [Concomitant]
     Dosage: UNK, 100 patches
  15. CELECOXIB [Concomitant]
     Dosage: 200 mg, QD
  16. LETROZOLE [Concomitant]
     Indication: BREAST CANCER METASTATIC
     Dosage: 2.5 mg, QD
  17. PANTOPRAZOLE [Concomitant]
     Dosage: 40 mg, QD

REACTIONS (4)
  - Metastases to bone [Not Recovered/Not Resolved]
  - Metastases to liver [Unknown]
  - Terminal state [Unknown]
  - General physical health deterioration [Unknown]
